FAERS Safety Report 8902102 (Version 4)
Quarter: 2013Q1

REPORT INFORMATION
  Report Type: Spontaneous
  Country: SE (occurrence: SE)
  Receive Date: 20121112
  Receipt Date: 20130118
  Transmission Date: 20140127
  Serious: Yes (Hospitalization, Other)
  Sender: FDA-Public Use
  Company Number: SE-PFIZER INC-2012276000

PATIENT
  Age: 61 Year
  Sex: Female

DRUGS (2)
  1. XALATAN [Suspect]
     Indication: GLAUCOMA
     Dosage: 1 GTT, 1X/DAY
     Dates: start: 201106
  2. XALATAN [Suspect]
     Dosage: 1 GTT, 1X/DAY
     Dates: start: 20121103, end: 201211

REACTIONS (9)
  - Hypersensitivity [Recovered/Resolved]
  - Pharyngeal oedema [Recovered/Resolved]
  - Urticaria [Recovered/Resolved]
  - Blood pressure increased [Not Recovered/Not Resolved]
  - Vasospasm [Unknown]
  - Abdominal discomfort [Unknown]
  - Pallor [Unknown]
  - Miosis [Unknown]
  - Malaise [Unknown]
